FAERS Safety Report 9411083 (Version 2)
Quarter: 2013Q3

REPORT INFORMATION
  Report Type: Spontaneous
  Country: SI (occurrence: SI)
  Receive Date: 20130720
  Receipt Date: 20130924
  Transmission Date: 20140515
  Serious: Yes (Other)
  Sender: FDA-Public Use
  Company Number: SI-AMGEN-SVNSP2013050094

PATIENT
  Age: 59 Year
  Sex: Female

DRUGS (7)
  1. PROLIA [Suspect]
     Indication: OSTEOPOROSIS POSTMENOPAUSAL
     Dosage: UNK
     Route: 058
     Dates: start: 20110824
  2. CALCIUM [Concomitant]
  3. VITAMIN D                          /00107901/ [Concomitant]
  4. VASILIP [Concomitant]
     Dosage: 20 MG, UNK
  5. VENTER [Concomitant]
     Dosage: 1 G, AS NECESSARY
  6. HELEX [Concomitant]
     Dosage: UNK UNK, AS NECESSARY
  7. CALCIUM CARBONATE [Concomitant]

REACTIONS (2)
  - Wrist fracture [Unknown]
  - Fall [Unknown]
